FAERS Safety Report 17002115 (Version 1)
Quarter: 2019Q4

REPORT INFORMATION
  Report Type: Spontaneous
  Country: CN (occurrence: CN)
  Receive Date: 20191106
  Receipt Date: 20191106
  Transmission Date: 20200122
  Serious: Yes (Other)
  Sender: FDA-Public Use
  Company Number: CN-BAXTER-2019BAX022259

PATIENT
  Age: 49 Year
  Sex: Female
  Weight: 60.8 kg

DRUGS (4)
  1. ENDOXAN [Suspect]
     Active Substance: CYCLOPHOSPHAMIDE
     Indication: BREAST CANCER FEMALE
     Dosage: ENDOXAN 0.9 G + SODIUM CHLORIDE 100 ML
     Route: 041
     Dates: start: 20191015, end: 20191015
  2. SODIUM CHLORIDE. [Suspect]
     Active Substance: SODIUM CHLORIDE
     Indication: MEDICATION DILUTION
     Dosage: EPIRUBICIN HYDROCHLORIDE 140 MG + SODIUM CHLORIDE 150 ML
     Route: 041
     Dates: start: 20191015, end: 20191015
  3. EPIRUBICIN HYDROCHLORIDE. [Suspect]
     Active Substance: EPIRUBICIN HYDROCHLORIDE
     Indication: BREAST CANCER FEMALE
     Dosage: EPIRUBICIN HYDROCHLORIDE 140 MG + SODIUM CHLORIDE 150 ML
     Route: 041
     Dates: start: 20191015, end: 20191015
  4. 0.9% SODIUM CHLORIDE INJECTION [Suspect]
     Active Substance: SODIUM CHLORIDE
     Indication: MEDICATION DILUTION
     Dosage: ENDOXAN 0.9 G + SODIUM CHLORIDE 100 ML
     Route: 041
     Dates: start: 20191015, end: 20191015

REACTIONS (2)
  - Bone marrow failure [Recovered/Resolved]
  - Gastrointestinal disorder [Unknown]

NARRATIVE: CASE EVENT DATE: 20191015
